FAERS Safety Report 6520612-9 (Version None)
Quarter: 2009Q4

REPORT INFORMATION
  Report Type: 
  Country: None (occurrence: None)
  Receive Date: 20091229
  Receipt Date: 20091215
  Transmission Date: 20100525
  Serious: Yes (Hospitalization)
  Sender: FDA-Public Use
  Company Number: DE-BRISTOL-MYERS SQUIBB COMPANY-14913537

PATIENT
  Age: 59 Year
  Sex: Male
  Weight: 117 kg

DRUGS (18)
  1. CETUXIMAB [Suspect]
     Indication: NON-SMALL CELL LUNG CANCER
     Dosage: DAY 1 OF CYCLE. 400MG/M2:17NOV09-17NOV09 250MG/M2 WEEKLY ONG 570MG ON 08DEC09 (RECENT INF)
     Route: 042
     Dates: start: 20091117
  2. CISPLATIN [Suspect]
     Indication: NON-SMALL CELL LUNG CANCER
     Dosage: 171MG ON 08DEC09 (LAST DOSE)
     Route: 042
     Dates: start: 20091117
  3. PEMETREXED DISODIUM [Suspect]
     Indication: NON-SMALL CELL LUNG CANCER
     Dosage: 1140MG ON 08DEC09(LAST DOSE)
     Route: 042
     Dates: start: 20091117
  4. FOLIC ACID [Concomitant]
     Dates: start: 20091111
  5. VITAMIN B-12 [Concomitant]
     Dates: start: 20091117
  6. CORTICOSTEROID [Concomitant]
     Dates: start: 20091116
  7. ANTIHISTAMINE NOS [Concomitant]
     Dates: start: 20091117
  8. ESIDRIX [Concomitant]
  9. DELIX [Concomitant]
  10. PENTAERYTHRITOL TETRANITRATE [Concomitant]
  11. AMLODIPINE [Concomitant]
  12. BELOC-ZOK [Concomitant]
  13. TORSEMIDE [Concomitant]
  14. SIMVAHEXAL [Concomitant]
  15. ARCOXIA [Concomitant]
  16. FENISTIL [Concomitant]
     Dates: start: 20091117, end: 20091208
  17. RANITIDINE [Concomitant]
     Dates: start: 20091117, end: 20091208
  18. ANEMET [Concomitant]
     Dates: start: 20091117, end: 20091208

REACTIONS (1)
  - TACHYARRHYTHMIA [None]
